FAERS Safety Report 22198165 (Version 4)
Quarter: 2023Q2

REPORT INFORMATION
  Report Type: Spontaneous
  Country: US (occurrence: US)
  Receive Date: 20230411
  Receipt Date: 20230605
  Transmission Date: 20230721
  Serious: Yes (Death)
  Sender: FDA-Public Use
  Company Number: US-PFIZER INC-PV202300061958

PATIENT
  Age: 87 Year
  Sex: Female

DRUGS (1)
  1. RETACRIT [Suspect]
     Active Substance: EPOETIN ALFA-EPBX
     Dosage: 40000 IU/ML, [DIRECTIONS: INJECT 40,000 UNITS OF RETACRIT/FREQUENCY: EVERY TWO WEEKS]

REACTIONS (2)
  - Renal failure [Fatal]
  - Off label use [Unknown]
